FAERS Safety Report 12336703 (Version 2)
Quarter: 2016Q2

REPORT INFORMATION
  Report Type: Spontaneous
  Country: US (occurrence: BR)
  Receive Date: 20160505
  Receipt Date: 20160510
  Transmission Date: 20160815
  Serious: Yes (Hospitalization, Other)
  Sender: FDA-Public Use
  Company Number: US-009507513-1604USA018456

PATIENT
  Age: 66 Year
  Sex: Male

DRUGS (2)
  1. TEMODAL [Suspect]
     Active Substance: TEMOZOLOMIDE
     Indication: GLIOBLASTOMA MULTIFORME
     Dosage: UNK
     Dates: start: 201501, end: 201508
  2. KEPPRA [Concomitant]
     Active Substance: LEVETIRACETAM
     Dosage: UNK

REACTIONS (2)
  - Pneumonia [Unknown]
  - Glioblastoma multiforme [Unknown]

NARRATIVE: CASE EVENT DATE: 201508
